FAERS Safety Report 9510992 (Version 1)
Quarter: 2013Q3

REPORT INFORMATION
  Report Type: Spontaneous
  Country: US (occurrence: None)
  Receive Date: 20130905
  Receipt Date: 20130905
  Transmission Date: 20140515
  Serious: Yes (Hospitalization)
  Sender: FDA-Public Use
  Company Number: 1877323

PATIENT
  Age: 68 Year
  Sex: 0

DRUGS (8)
  1. BLEOMYCIN SULFATE [Suspect]
     Indication: DIFFUSE LARGE B-CELL LYMPHOMA
  2. VINCRISTINE SULFATE [Suspect]
  3. RITUXIMAB [Suspect]
  4. CYCLOPHOSPHAMIDE [Suspect]
  5. DOXORUBICIN [Suspect]
  6. ONCOVIN [Suspect]
  7. PREDNISONE [Suspect]
  8. VINBLASTINE [Suspect]

REACTIONS (2)
  - Pneumocystis jirovecii pneumonia [None]
  - White blood cell count decreased [None]
